FAERS Safety Report 20125112 (Version 1)
Quarter: 2021Q4

REPORT INFORMATION
  Report Type: Report from Study
  Country: US (occurrence: US)
  Receive Date: 20211129
  Receipt Date: 20211129
  Transmission Date: 20220303
  Serious: Yes (Death, Other)
  Sender: FDA-Public Use
  Company Number: US-JAZZ-2021-US-020865

PATIENT
  Age: 52 Year
  Sex: Female

DRUGS (18)
  1. XYREM [Suspect]
     Active Substance: SODIUM OXYBATE
     Indication: Product used for unknown indication
     Dosage: 2.25 GRAM, BID
     Route: 048
     Dates: start: 201309, end: 201309
  2. XYREM [Suspect]
     Active Substance: SODIUM OXYBATE
     Dosage: 3 GRAM, BID
     Route: 048
     Dates: start: 201309, end: 201311
  3. XYREM [Suspect]
     Active Substance: SODIUM OXYBATE
     Dosage: 4.5 GRAM, BID
     Route: 048
     Dates: start: 201311
  4. ZOLOFT [Concomitant]
     Active Substance: SERTRALINE HYDROCHLORIDE
     Dosage: 0000
     Dates: start: 20130910
  5. ATENOLOL [Concomitant]
     Active Substance: ATENOLOL
     Dosage: 0000
     Dates: start: 20130910
  6. FERROUS SULFATE [Concomitant]
     Active Substance: FERROUS SULFATE
     Dosage: 0000
     Dates: start: 20130910
  7. PRILOSEC [Concomitant]
     Active Substance: OMEPRAZOLE MAGNESIUM
     Dosage: 0000
     Dates: start: 20130910
  8. CLONAZEPAM [Concomitant]
     Active Substance: CLONAZEPAM
     Dosage: 0000
     Dates: start: 20131007
  9. RESTASIS [Concomitant]
     Active Substance: CYCLOSPORINE
     Dosage: 0000
     Dates: start: 20151006
  10. VITAMIN D3 [Concomitant]
     Active Substance: CHOLECALCIFEROL
     Dosage: 0000
     Dates: start: 20151006
  11. CALCIUM CITRATE [Concomitant]
     Active Substance: CALCIUM CITRATE
     Dosage: 0000
     Dates: start: 20151006
  12. CHONDROITIN SULFATE (BOVINE)\GLUCOSAMINE SULFATE [Concomitant]
     Active Substance: CHONDROITIN SULFATE (BOVINE)\GLUCOSAMINE SULFATE
     Dosage: 0000
     Dates: start: 20151006
  13. MODAFINIL [Concomitant]
     Active Substance: MODAFINIL
     Dosage: 0000
     Dates: start: 20160219
  14. OXYCODONE HYDROCHLORIDE [Concomitant]
     Active Substance: OXYCODONE HYDROCHLORIDE
     Dosage: 0020
     Dates: start: 20150902
  15. TOPIRAMATE [Concomitant]
     Active Substance: TOPIRAMATE
     Dosage: 0000
     Dates: start: 20160601
  16. MAGNESIUM OXIDE [Concomitant]
     Active Substance: MAGNESIUM OXIDE
     Dosage: 0000
     Dates: start: 20140701
  17. COD LIVER OIL [COD-LIVER OIL] [Concomitant]
     Dosage: 0000
     Dates: start: 20160601
  18. PROAIR HFA [Concomitant]
     Active Substance: ALBUTEROL SULFATE
     Dosage: 0000
     Dates: start: 19800701

REACTIONS (2)
  - Death [Fatal]
  - Expired product administered [Unknown]

NARRATIVE: CASE EVENT DATE: 20211001
